FAERS Safety Report 24041822 (Version 1)
Quarter: 2024Q3

REPORT INFORMATION
  Report Type: Spontaneous
  Country: ES (occurrence: ES)
  Receive Date: 20240702
  Receipt Date: 20240702
  Transmission Date: 20241016
  Serious: Yes (Hospitalization, Other)
  Sender: BAXTER
  Company Number: None

PATIENT
  Age: 79 Year
  Sex: Female

DRUGS (2)
  1. CYCLOPHOSPHAMIDE [Suspect]
     Active Substance: CYCLOPHOSPHAMIDE
     Indication: Breast cancer female
     Dosage: 960 MG, EVERY 2 WEEK, DOSAGE FORM: SOLUTION FOR INJECTION/INFUSION (120A)
     Route: 042
     Dates: start: 20230112, end: 20230112
  2. DOXORUBICIN [Suspect]
     Active Substance: DOXORUBICIN
     Indication: Breast cancer female
     Dosage: 96 MILLIGRAMS, EVERY 2 WEEKS, DOSAGE FORM: SOLUTION FOR INJECTION/INFUSION (202A)
     Route: 042
     Dates: start: 20230112, end: 20230112

REACTIONS (3)
  - Hypokalaemia [Recovered/Resolved]
  - Agranulocytosis [Recovered/Resolved]
  - Neutropenia [Recovered/Resolved]

NARRATIVE: CASE EVENT DATE: 20230120
